FAERS Safety Report 8585152-4 (Version None)
Quarter: 2012Q3

REPORT INFORMATION
  Report Type: 
  Country: None (occurrence: None)
  Receive Date: 20120810
  Receipt Date: 20120803
  Transmission Date: 20120928
  Serious: Yes (Other)
  Sender: FDA-Public Use
  Company Number: PHHY2012AU066452

PATIENT
  Sex: Male

DRUGS (10)
  1. LISINOPRIL [Concomitant]
     Dosage: 10 MG, AT MORNING
  2. FUROSEMIDE [Concomitant]
     Dosage: 20 MG, AT MORNING
  3. SLOW-K [Suspect]
     Dosage: 600 MG, UNK
  4. VALPROATE SODIUM [Concomitant]
     Dosage: 100 MG, AT EVENING
  5. BISOPROLOL FUMARATE [Concomitant]
     Dosage: 7.5 MG, AT MORNING
  6. WARFARIN SODIUM [Concomitant]
     Dosage: UNK UKN, UNK
  7. CLOZARIL [Suspect]
     Indication: SCHIZOPHRENIA
     Dosage: 200 MG, AT EVENING
     Route: 048
     Dates: start: 20060825
  8. BISOPROLOL FUMARATE [Concomitant]
     Dosage: 5 MG, AT MORNING
  9. DIAZEPAM [Concomitant]
     Dosage: 5 MG, AT EVENING
  10. LIPITOR [Concomitant]
     Dosage: 20 MG, AT MORNING

REACTIONS (3)
  - MITRAL VALVE INCOMPETENCE [None]
  - TRICUSPID VALVE INCOMPETENCE [None]
  - DYSPNOEA [None]
